FAERS Safety Report 19790912 (Version 1)
Quarter: 2021Q3

REPORT INFORMATION
  Report Type: Spontaneous
  Country: US (occurrence: US)
  Receive Date: 20210906
  Receipt Date: 20210906
  Transmission Date: 20211014
  Serious: No
  Sender: FDA-Public Use
  Company Number: US-CIPLA LTD.-2020US06504

PATIENT

DRUGS (1)
  1. ALENDRONATE [Suspect]
     Active Substance: ALENDRONATE SODIUM
     Indication: OSTEOPOROSIS
     Dosage: 70 MILLIGRAM, ONCE WEEKLY
     Route: 048

REACTIONS (4)
  - Neck pain [Unknown]
  - Taste disorder [Not Recovered/Not Resolved]
  - Product packaging difficult to open [Unknown]
  - Product physical issue [Unknown]

NARRATIVE: CASE EVENT DATE: 20200906
